FAERS Safety Report 11969856 (Version 1)
Quarter: 2016Q1

REPORT INFORMATION
  Report Type: Spontaneous
  Country: GB (occurrence: GB)
  Receive Date: 20160128
  Receipt Date: 20160128
  Transmission Date: 20160526
  Serious: Yes (Other)
  Sender: FDA-Public Use
  Company Number: GB-GLAXOSMITHKLINE-GB2016GSK009383

PATIENT
  Sex: Male

DRUGS (2)
  1. SENSODYNE [Suspect]
     Active Substance: POTASSIUM NITRATE\SODIUM FLUORIDE
     Indication: PRODUCT USED FOR UNKNOWN INDICATION
  2. SENSODYNE RAPID [Suspect]
     Active Substance: SODIUM FLUORIDE\STRONTIUM ACETATE
     Indication: PRODUCT USED FOR UNKNOWN INDICATION

REACTIONS (3)
  - Visual impairment [Unknown]
  - Blindness [Unknown]
  - Macular degeneration [Unknown]
